FAERS Safety Report 12052955 (Version 1)
Quarter: 2016Q1

REPORT INFORMATION
  Report Type: Spontaneous
  Country: US (occurrence: US)
  Receive Date: 20160209
  Receipt Date: 20160209
  Transmission Date: 20160526
  Serious: No
  Sender: FDA-Public Use
  Company Number: US-PFIZER INC-2016017318

PATIENT
  Age: 42 Year
  Sex: Female
  Weight: 72 kg

DRUGS (3)
  1. GEODON [Suspect]
     Active Substance: ZIPRASIDONE HYDROCHLORIDE\ZIPRASIDONE MESYLATE
     Indication: BIPOLAR DISORDER
     Dosage: 40 MG, 2X/DAY, 40 MG IN THE MORNING AND 40 MG AT NIGHT
  2. GEODON [Suspect]
     Active Substance: ZIPRASIDONE HYDROCHLORIDE\ZIPRASIDONE MESYLATE
     Indication: MANIA
     Dosage: 60 MG, 2X/DAY, 60 MG IN THE MORNING AND 60 MG AT NIGHT
  3. GEODON [Suspect]
     Active Substance: ZIPRASIDONE HYDROCHLORIDE\ZIPRASIDONE MESYLATE
     Dosage: 120 MG, 2X/DAY, ONE IN THE MORNING AND ONE AT NIGHT
     Dates: start: 20151203, end: 20160106

REACTIONS (7)
  - Bruxism [Recovered/Resolved]
  - Neck pain [Not Recovered/Not Resolved]
  - Musculoskeletal pain [Not Recovered/Not Resolved]
  - Muscle contractions involuntary [Recovered/Resolved]
  - Hand deformity [Recovered/Resolved]
  - Facial spasm [Recovered/Resolved]
  - Tic [Recovered/Resolved]

NARRATIVE: CASE EVENT DATE: 201512
